FAERS Safety Report 11912959 (Version 1)
Quarter: 2016Q1

REPORT INFORMATION
  Report Type: Spontaneous
  Country: US (occurrence: US)
  Receive Date: 20160113
  Receipt Date: 20160113
  Transmission Date: 20160526
  Serious: Yes (Other)
  Sender: FDA-Public Use
  Company Number: US-ROCHE-1693480

PATIENT
  Age: 14 Year
  Sex: Female
  Weight: 56.75 kg

DRUGS (2)
  1. XYZAL [Concomitant]
     Active Substance: LEVOCETIRIZINE DIHYDROCHLORIDE
     Indication: HYPERSENSITIVITY
     Route: 048
     Dates: start: 20140707
  2. XOLAIR [Suspect]
     Active Substance: OMALIZUMAB
     Indication: URTICARIA
     Dosage: STRENGHT: 150 MG/ 1.2 ML
     Route: 058
     Dates: start: 20150101

REACTIONS (6)
  - Dyspnoea [Unknown]
  - Limb discomfort [Unknown]
  - Arthralgia [Unknown]
  - Heart rate increased [Unknown]
  - Back pain [Unknown]
  - Blood pressure increased [Unknown]

NARRATIVE: CASE EVENT DATE: 20151118
